FAERS Safety Report 14613008 (Version 2)
Quarter: 2018Q2

REPORT INFORMATION
  Report Type: Spontaneous
  Country: DE (occurrence: DE)
  Receive Date: 20180308
  Receipt Date: 20180422
  Transmission Date: 20180711
  Serious: Yes (Hospitalization, Other)
  Sender: FDA-Public Use
  Company Number: DE-APOTEX-2018AP007844

PATIENT
  Sex: Female

DRUGS (1)
  1. PAROXETINE. [Suspect]
     Active Substance: PAROXETINE
     Indication: ANXIETY DISORDER
     Dosage: UNK
     Route: 064

REACTIONS (10)
  - Bradycardia neonatal [Recovered/Resolved]
  - Foetal exposure during pregnancy [Recovered/Resolved]
  - Convulsion neonatal [Recovered/Resolved]
  - Hypertonia [Recovered/Resolved]
  - Blood lactic acid increased [Recovered/Resolved]
  - Hypopnoea [Recovered/Resolved]
  - Encephalopathy neonatal [Recovered/Resolved]
  - Drug withdrawal syndrome [Recovered/Resolved]
  - Electroencephalogram abnormal [Recovered/Resolved]
  - Hypotonia neonatal [Recovered/Resolved]
